FAERS Safety Report 8726836 (Version 2)
Quarter: 2012Q4

REPORT INFORMATION
  Report Type: 
  Country: FR (occurrence: FR)
  Receive Date: 20120816
  Receipt Date: 20120907
  Transmission Date: 20130627
  Serious: Yes (Other)
  Sender: FDA-Public Use
  Company Number: FR-PFIZER INC-2012195201

PATIENT
  Age: 72 Year
  Sex: Female

DRUGS (1)
  1. LYRICA [Suspect]
     Indication: NEURALGIA
     Dosage: 150 mg, 2x/day
     Dates: start: 201206

REACTIONS (11)
  - Blindness [Not Recovered/Not Resolved]
  - Gastrooesophageal reflux disease [Not Recovered/Not Resolved]
  - Cough [Not Recovered/Not Resolved]
  - Hiatus hernia [Not Recovered/Not Resolved]
  - Muscle atrophy [Not Recovered/Not Resolved]
  - Sleep disorder [Unknown]
  - Nausea [Unknown]
  - Eye pain [Unknown]
  - Swelling [Unknown]
  - Decreased appetite [Not Recovered/Not Resolved]
  - Hypersensitivity [Unknown]
